FAERS Safety Report 10626516 (Version 1)
Quarter: 2014Q4

REPORT INFORMATION
  Report Type: Spontaneous
  Country: US (occurrence: US)
  Receive Date: 20141204
  Receipt Date: 20141204
  Transmission Date: 20150529
  Serious: No
  Sender: FDA-Public Use
  Company Number: US-BAYER-2014-179604

PATIENT
  Age: 89 Year
  Sex: Female
  Weight: 74.83 kg

DRUGS (4)
  1. ENTERIC ASPIRIN [Concomitant]
     Active Substance: ASPIRIN
     Dosage: UNK UNK, UNK
  2. VITAMIN D [Concomitant]
     Active Substance: CHOLECALCIFEROL
     Dosage: UNK UNK, UNK
  3. ALEVE [Suspect]
     Active Substance: NAPROXEN SODIUM
     Dosage: 2 DF, DAILY OR TWICE A DAY
     Route: 048
  4. ANAPRIL [Concomitant]
     Dosage: UNK UNK, UNK

REACTIONS (2)
  - Incorrect drug administration duration [None]
  - Extra dose administered [None]
